FAERS Safety Report 15352418 (Version 1)
Quarter: 2018Q3

REPORT INFORMATION
  Report Type: Spontaneous
  Country: AU (occurrence: AU)
  Receive Date: 20180905
  Receipt Date: 20180905
  Transmission Date: 20181010
  Serious: Yes (Hospitalization, Other)
  Sender: FDA-Public Use
  Company Number: AU-GLAXOSMITHKLINE-AU2017GSK189294

PATIENT
  Sex: Male

DRUGS (2)
  1. TAFENOQUINE [Suspect]
     Active Substance: TAFENOQUINE
     Indication: PRODUCT USED FOR UNKNOWN INDICATION
     Dosage: UNK
     Dates: start: 2001
  2. VALIUM [Suspect]
     Active Substance: DIAZEPAM
     Indication: PRODUCT USED FOR UNKNOWN INDICATION
     Dosage: UNK

REACTIONS (19)
  - Suicidal ideation [Unknown]
  - Post-traumatic stress disorder [Unknown]
  - Nightmare [Unknown]
  - Emotional poverty [Unknown]
  - Alcohol abuse [Unknown]
  - Joint injury [Unknown]
  - Frustration tolerance decreased [Unknown]
  - Impaired quality of life [Unknown]
  - Depression [Unknown]
  - Paranoia [Unknown]
  - Overdose [Unknown]
  - Brain injury [Unknown]
  - Amnesia [Unknown]
  - Social avoidant behaviour [Unknown]
  - Suicide attempt [Unknown]
  - Anxiety [Unknown]
  - Mood swings [Unknown]
  - Depressed mood [Unknown]
  - Antisocial personality disorder [Unknown]
